FAERS Safety Report 6932973-7 (Version None)
Quarter: 2010Q3

REPORT INFORMATION
  Report Type: 
  Country: None (occurrence: None)
  Receive Date: 20100817
  Receipt Date: 20100802
  Transmission Date: 20110219
  Serious: Yes (Hospitalization, Other)
  Sender: FDA-Public Use
  Company Number: A-US2010-38652

PATIENT
  Age: 82 Year
  Sex: Female

DRUGS (4)
  1. TRACLEER [Suspect]
     Indication: PULMONARY ARTERIAL HYPERTENSION
     Dosage: 62.5 MG, BID, 125 MG, BID, ORAL,  62.5 MG, BID, ORAL
     Route: 048
     Dates: start: 20100701, end: 20100730
  2. TRACLEER [Suspect]
     Indication: PULMONARY ARTERIAL HYPERTENSION
     Dosage: 62.5 MG, BID, 125 MG, BID, ORAL,  62.5 MG, BID, ORAL
     Route: 048
     Dates: start: 20100701
  3. TRACLEER [Suspect]
     Indication: PULMONARY ARTERIAL HYPERTENSION
     Dosage: 62.5 MG, BID, 125 MG, BID, ORAL,  62.5 MG, BID, ORAL
     Route: 048
     Dates: start: 20100701
  4. ENALAPRIL MALEATE [Concomitant]

REACTIONS (4)
  - DRUG INTOLERANCE [None]
  - HYPOTENSION [None]
  - MYOCARDIAL INFARCTION [None]
  - OEDEMA PERIPHERAL [None]
